FAERS Safety Report 24428459 (Version 2)
Quarter: 2024Q4

REPORT INFORMATION
  Report Type: Spontaneous
  Country: US (occurrence: US)
  Receive Date: 20241011
  Receipt Date: 20241029
  Transmission Date: 20250115
  Serious: No
  Sender: PFIZER
  Company Number: US-PFIZER INC-202400274616

PATIENT
  Age: 66 Year
  Sex: Male

DRUGS (13)
  1. INLYTA [Suspect]
     Active Substance: AXITINIB
     Dosage: TAKE 1 TABLET TWICE DAILY
     Dates: start: 202409
  2. KEYTRUDA [Concomitant]
     Active Substance: PEMBROLIZUMAB
  3. ATORVASTATIN CALCIUM [Concomitant]
     Active Substance: ATORVASTATIN CALCIUM
  4. BENADRYL [Concomitant]
     Active Substance: DIPHENHYDRAMINE HYDROCHLORIDE
  5. CARVEDILOL [Concomitant]
     Active Substance: CARVEDILOL
  6. ACETAMINOPHEN AND CODEINE [Concomitant]
     Active Substance: ACETAMINOPHEN\CODEINE PHOSPHATE
  7. AMLODIPINE BESYLATE [Concomitant]
     Active Substance: AMLODIPINE BESYLATE
  8. CLONAZEPAM [Concomitant]
     Active Substance: CLONAZEPAM
  9. ACYCLOVIR [Concomitant]
     Active Substance: ACYCLOVIR
  10. BUPROPION [Concomitant]
     Active Substance: BUPROPION
  11. MAGNESIUM [Concomitant]
     Active Substance: MAGNESIUM
  12. COLACE [Concomitant]
     Active Substance: DOCUSATE SODIUM
  13. OXYCODONE [Concomitant]
     Active Substance: OXYCODONE

REACTIONS (5)
  - Blood pressure increased [Not Recovered/Not Resolved]
  - Fatigue [Not Recovered/Not Resolved]
  - Constipation [Not Recovered/Not Resolved]
  - Dysphonia [Unknown]
  - Dandruff [Unknown]
